FAERS Safety Report 8354931-0 (Version None)
Quarter: 2012Q2

REPORT INFORMATION
  Report Type: 
  Country: None (occurrence: None)
  Receive Date: 20120511
  Receipt Date: 20120430
  Transmission Date: 20120825
  Serious: Yes (Hospitalization)
  Sender: FDA-Public Use
  Company Number: FR-BRISTOL-MYERS SQUIBB COMPANY-16558132

PATIENT
  Age: 51 Year
  Sex: Male

DRUGS (1)
  1. MITOTANE [Suspect]
     Indication: ADRENOCORTICAL CARCINOMA
     Dosage: RESTARTED WITH INCREASED DOSAGE

REACTIONS (4)
  - DIZZINESS [None]
  - OVERDOSE [None]
  - HYPERTRIGLYCERIDAEMIA [None]
  - ASTHENIA [None]
